FAERS Safety Report 9438983 (Version 1)
Quarter: 2013Q3

REPORT INFORMATION
  Report Type: Spontaneous
  Country: DK (occurrence: DK)
  Receive Date: 20130802
  Receipt Date: 20130802
  Transmission Date: 20140515
  Serious: Yes (Hospitalization)
  Sender: FDA-Public Use
  Company Number: PHHY2013DK080354

PATIENT
  Age: 78 Year
  Sex: Female

DRUGS (1)
  1. ALENDRONATE SANDOZ [Suspect]
     Indication: OSTEOPOROSIS
     Dosage: 70 MG, QW
     Route: 048
     Dates: start: 2000

REACTIONS (2)
  - Jaw operation [Unknown]
  - Osteonecrosis of jaw [Recovered/Resolved with Sequelae]
